FAERS Safety Report 12210872 (Version 1)
Quarter: 2016Q1

REPORT INFORMATION
  Report Type: Spontaneous
  Country: FR (occurrence: FR)
  Receive Date: 20160325
  Receipt Date: 20160325
  Transmission Date: 20160526
  Serious: Yes (Hospitalization, Other)
  Sender: FDA-Public Use
  Company Number: FR-ASTRAZENECA-2016SE30968

PATIENT
  Age: 58 Year
  Sex: Female

DRUGS (2)
  1. ALTEISDUO [Suspect]
     Active Substance: HYDROCHLOROTHIAZIDE\OLMESARTAN MEDOXOMIL
     Indication: HYPERTENSION
     Route: 065
     Dates: start: 2012, end: 20160222
  2. CRESTOR [Suspect]
     Active Substance: ROSUVASTATIN CALCIUM
     Indication: DYSLIPIDAEMIA
     Route: 048
     Dates: start: 2012, end: 20160210

REACTIONS (9)
  - Interstitial lung disease [Recovering/Resolving]
  - Bronchitis [Unknown]
  - Throat irritation [Unknown]
  - Myalgia [Recovered/Resolved]
  - Fall [Unknown]
  - Rhinitis [Unknown]
  - Presyncope [Unknown]
  - Loss of consciousness [Unknown]
  - Muscular weakness [Recovered/Resolved]

NARRATIVE: CASE EVENT DATE: 201602
